FAERS Safety Report 9202737 (Version 7)
Quarter: 2013Q4

REPORT INFORMATION
  Report Type: Report from Study
  Country: US (occurrence: US)
  Receive Date: 20130401
  Receipt Date: 20131226
  Transmission Date: 20140711
  Serious: Yes (Other)
  Sender: FDA-Public Use
  Company Number: US-PFIZER INC-2012330046

PATIENT
  Age: 39 Year
  Sex: Female
  Weight: 85 kg

DRUGS (7)
  1. NALTREXONE HYDROCHLORIDE/OXYCODONE HYDROCHLORIDE [Suspect]
     Indication: BACK PAIN
     Dosage: 20MG TDD
     Route: 048
     Dates: start: 20120828
  2. NALTREXONE HYDROCHLORIDE/OXYCODONE HYDROCHLORIDE [Suspect]
     Dosage: 80 MG TDD
     Route: 048
     Dates: start: 20121008, end: 20121218
  3. NALTREXONE HYDROCHLORIDE/OXYCODONE HYDROCHLORIDE [Suspect]
     Dosage: 80 MG TDD
     Route: 048
     Dates: start: 20121218, end: 20130102
  4. DEPO-PROVERA [Suspect]
     Indication: CONTRACEPTION
     Dosage: EVERY 3 MONTHS INJECTION
     Route: 030
     Dates: start: 201006, end: 201006
  5. DEPO-PROVERA [Suspect]
     Dosage: EVERY 3 MONTHS INJECTION
     Route: 030
     Dates: start: 20120901, end: 20120901
  6. CLOBETASOL [Concomitant]
     Indication: ECZEMA
     Dosage: UNK
     Dates: start: 20121002
  7. AMOXICILIN [Concomitant]
     Indication: OROPHARYNGEAL PAIN
     Dosage: 250 MG, 2X/DAY
     Route: 048
     Dates: start: 20121122, end: 20121130

REACTIONS (3)
  - Drug administration error [Recovered/Resolved]
  - Unintended pregnancy [Recovered/Resolved]
  - Abortion spontaneous [Recovered/Resolved]
